FAERS Safety Report 12346240 (Version 4)
Quarter: 2019Q3

REPORT INFORMATION
  Report Type: Spontaneous
  Country: US (occurrence: US)
  Receive Date: 20160509
  Receipt Date: 20190815
  Transmission Date: 20191004
  Serious: No
  Sender: FDA-Public Use
  Company Number: US-PFIZER INC-2016247729

PATIENT
  Age: 73 Year
  Sex: Female
  Weight: 59 kg

DRUGS (1)
  1. XELJANZ [Suspect]
     Active Substance: TOFACITINIB CITRATE
     Indication: RHEUMATOID ARTHRITIS
     Dosage: 5 MG, 2X/DAY

REACTIONS (2)
  - Influenza like illness [Unknown]
  - Therapeutic product effect incomplete [Unknown]
